FAERS Safety Report 12877086 (Version 1)
Quarter: 2016Q4

REPORT INFORMATION
  Report Type: Spontaneous
  Country: US (occurrence: US)
  Receive Date: 20161022
  Receipt Date: 20161022
  Transmission Date: 20170207
  Serious: Yes (Disabling)
  Sender: FDA-Public Use
  Company Number: None

PATIENT
  Age: 49 Year
  Sex: Female
  Weight: 67.5 kg

DRUGS (16)
  1. FENTANYL. [Concomitant]
     Active Substance: FENTANYL
  2. NUVIGIL [Concomitant]
     Active Substance: ARMODAFINIL
  3. CERTERIZINE [Concomitant]
  4. VITAMIN B12 [Concomitant]
     Active Substance: CYANOCOBALAMIN
  5. TIZANIDINE. [Concomitant]
     Active Substance: TIZANIDINE
  6. VITAMIN D [Concomitant]
     Active Substance: CHOLECALCIFEROL
  7. ARMODAFINIL. [Suspect]
     Active Substance: ARMODAFINIL
     Indication: HYPERSOMNIA
     Dosage: ?          QUANTITY:1 TABLET(S);?
     Route: 048
     Dates: start: 20160715, end: 20161022
  8. GABAPENTIN. [Concomitant]
     Active Substance: GABAPENTIN
  9. DEXILANT [Concomitant]
     Active Substance: DEXLANSOPRAZOLE
  10. VICODIN [Concomitant]
     Active Substance: ACETAMINOPHEN\HYDROCODONE BITARTRATE
  11. MONTELUKAST [Concomitant]
     Active Substance: MONTELUKAST SODIUM
  12. CLONEZEPAM [Concomitant]
  13. REMICADE [Concomitant]
     Active Substance: INFLIXIMAB
  14. PREDNISONE. [Concomitant]
     Active Substance: PREDNISONE
  15. EXCEDRIN [Concomitant]
     Active Substance: ACETAMINOPHEN\ASPIRIN\CAFFEINE
  16. PROBIOTIC [Concomitant]
     Active Substance: PROBIOTICS NOS

REACTIONS (8)
  - Urticaria [None]
  - Skin reaction [None]
  - Burning sensation [None]
  - Fatigue [None]
  - Diarrhoea [None]
  - Product substitution issue [None]
  - Initial insomnia [None]
  - Flushing [None]

NARRATIVE: CASE EVENT DATE: 20160715
